FAERS Safety Report 8538593-5 (Version None)
Quarter: 2012Q3

REPORT INFORMATION
  Report Type: 
  Country: None (occurrence: None)
  Receive Date: 20120718
  Receipt Date: 20120718
  Transmission Date: 20120928
  Serious: Yes (Other)
  Sender: FDA-Public Use
  Company Number: None

PATIENT
  Age: 68 Year
  Sex: Female
  Weight: 54.4316 kg

DRUGS (3)
  1. ALLERGEN BOTOX A [Concomitant]
  2. PROLIA ADMINISTERED IN HOSPITAL PROLIA TO BE GIVEN 2X YEAR - ONLY TOOK [Suspect]
     Indication: OSTEOPOROSIS
     Dosage: 1 INJECTION EVERY 6 MO I TOOK ONLY 1 INJECTION IN 2011 ; 1 INJECTION I TOOK ONLY 1 2012
     Route: 058
     Dates: start: 20110301
  3. PROLIA ADMINISTERED IN HOSPITAL PROLIA TO BE GIVEN 2X YEAR - ONLY TOOK [Suspect]
     Indication: OSTEOPOROSIS
     Dosage: 1 INJECTION EVERY 6 MO I TOOK ONLY 1 INJECTION IN 2011 ; 1 INJECTION I TOOK ONLY 1 2012
     Route: 058
     Dates: start: 20120301

REACTIONS (2)
  - TORTICOLLIS [None]
  - CONDITION AGGRAVATED [None]
